FAERS Safety Report 5229004-6 (Version None)
Quarter: 2007Q1

REPORT INFORMATION
  Report Type: 
  Country: None (occurrence: None)
  Receive Date: 20061201
  Receipt Date: 20060920
  Transmission Date: 20070707
  Serious: No
  Sender: FDA-Public Use
  Company Number: US200609005035

PATIENT
  Age: 50 Year
  Sex: Female

DRUGS (6)
  1. CYMBALTA [Suspect]
     Indication: FIBROMYALGIA
     Dosage: 30 MG, ORAL
     Route: 048
     Dates: start: 20060919
  2. CELEBREX [Concomitant]
  3. PREMPHASE (PREMARIN;CYCRIN 14/14) [Concomitant]
  4. IBUPROFEN [Concomitant]
  5. ULTRAM [Concomitant]
  6. SOMA [Concomitant]

REACTIONS (4)
  - EARLY MORNING AWAKENING [None]
  - HEADACHE [None]
  - NAUSEA [None]
  - PAIN [None]
